FAERS Safety Report 9502892 (Version 1)
Quarter: 2013Q3

REPORT INFORMATION
  Report Type: Spontaneous
  Country: GB (occurrence: GB)
  Receive Date: 20130906
  Receipt Date: 20130906
  Transmission Date: 20140515
  Serious: Yes (Other)
  Sender: FDA-Public Use
  Company Number: GB-JNJFOC-20130815779

PATIENT
  Sex: 0

DRUGS (2)
  1. ITRACONAZOLE [Suspect]
     Indication: BRONCHOPULMONARY ASPERGILLOSIS
     Route: 048
  2. ITRACONAZOLE [Suspect]
     Indication: BRONCHOPULMONARY ASPERGILLOSIS
     Route: 042

REACTIONS (6)
  - Condition aggravated [Unknown]
  - Oedema peripheral [Unknown]
  - Headache [Unknown]
  - Rash [Unknown]
  - Drug ineffective [Unknown]
  - Nausea [Unknown]
